FAERS Safety Report 25412103 (Version 2)
Quarter: 2025Q2

REPORT INFORMATION
  Report Type: Spontaneous
  Country: CH (occurrence: CH)
  Receive Date: 20250609
  Receipt Date: 20250630
  Transmission Date: 20250717
  Serious: Yes (Hospitalization, Other)
  Sender: RANBAXY
  Company Number: CH-SUN PHARMACEUTICAL INDUSTRIES INC-2025R1-510917

PATIENT
  Sex: Female

DRUGS (1)
  1. CAPECITABINE [Suspect]
     Active Substance: CAPECITABINE
     Indication: Multiple sclerosis
     Dosage: 1500 MILLIGRAM, BID, (1000 MG/M2) FOR 14 DAYS
     Route: 065

REACTIONS (1)
  - Enterocolitis [Recovering/Resolving]
